FAERS Safety Report 6491305-1 (Version None)
Quarter: 2009Q4

REPORT INFORMATION
  Report Type: 
  Country: None (occurrence: None)
  Receive Date: 20091211
  Receipt Date: 20091204
  Transmission Date: 20100525
  Serious: No
  Sender: FDA-Public Use
  Company Number: US-B.I. PHARMACEUTICALS,INC./RIDGEFIELD-2009-BP-14101BP

PATIENT
  Sex: Male

DRUGS (8)
  1. COMBIVENT [Suspect]
     Indication: DYSPNOEA
     Dosage: 8 PUF
     Route: 055
     Dates: start: 20091101, end: 20091201
  2. ATENOLOL [Concomitant]
     Indication: HYPERTENSION
  3. LOVASTATIN [Concomitant]
     Indication: BLOOD CHOLESTEROL INCREASED
  4. HYDROCODONE [Concomitant]
     Indication: OSTEOARTHRITIS
  5. ALLOPURINOL [Concomitant]
     Indication: GOUTY ARTHRITIS
  6. COLCHICINE [Concomitant]
     Indication: GOUTY ARTHRITIS
  7. AMBIEN [Concomitant]
     Indication: INSOMNIA
  8. LUNESTA [Concomitant]
     Indication: INSOMNIA

REACTIONS (1)
  - HYPOTENSION [None]
